FAERS Safety Report 4681675-9 (Version None)
Quarter: 2005Q2

REPORT INFORMATION
  Report Type: 
  Country: None (occurrence: None)
  Receive Date: 20050603
  Receipt Date: 20050131
  Transmission Date: 20051028
  Serious: Yes (Other)
  Sender: FDA-Public Use
  Company Number: US-MERCK-0502USA00077

PATIENT
  Age: 66 Year
  Sex: Female
  Weight: 95 kg

DRUGS (11)
  1. VIOXX [Suspect]
     Indication: ANKLE FRACTURE
     Route: 048
     Dates: start: 20011201, end: 20041001
  2. VIOXX [Suspect]
     Indication: PAIN IN EXTREMITY
     Route: 048
     Dates: start: 20011201, end: 20041001
  3. FUROSEMIDE [Concomitant]
     Indication: HYPERTENSION
     Route: 065
     Dates: start: 20010629
  4. FUROSEMIDE [Concomitant]
     Indication: OEDEMA
     Route: 065
     Dates: start: 20010629
  5. PLAVIX [Concomitant]
     Indication: CEREBROVASCULAR ACCIDENT
     Route: 065
  6. PLAVIX [Concomitant]
     Indication: MYOCARDIAL INFARCTION
     Route: 065
  7. NEXIUM [Concomitant]
     Indication: GASTROOESOPHAGEAL REFLUX DISEASE
     Route: 065
  8. INSULIN [Concomitant]
     Indication: DIABETES MELLITUS
     Route: 065
  9. LIPITOR [Concomitant]
     Route: 065
     Dates: start: 20010702
  10. LOPRESSOR [Concomitant]
     Indication: CHEST PAIN
     Route: 065
     Dates: start: 20020522
  11. LOPRESSOR [Concomitant]
     Indication: ATHEROSCLEROSIS
     Route: 065
     Dates: start: 20020522

REACTIONS (3)
  - BLOOD CHOLESTEROL INCREASED [None]
  - EMOTIONAL DISTRESS [None]
  - MYOCARDIAL INFARCTION [None]
